FAERS Safety Report 10232569 (Version 2)
Quarter: 2014Q2

REPORT INFORMATION
  Report Type: Spontaneous
  Country: IE (occurrence: IE)
  Receive Date: 20140612
  Receipt Date: 20140612
  Transmission Date: 20141212
  Serious: Yes (Other)
  Sender: FDA-Public Use
  Company Number: IE-AMGEN INC.-IRLSP2014035794

PATIENT
  Age: 80 Year
  Sex: Female

DRUGS (5)
  1. PROLIA [Suspect]
     Indication: OSTEOPOROSIS
     Dosage: 60 MG, Q6MO
     Route: 058
     Dates: start: 20140308
  2. LYRICA [Concomitant]
     Indication: NEURALGIA
     Dosage: 50 MG, BID
     Route: 048
  3. ZOPICLONE [Concomitant]
     Indication: INSOMNIA
     Dosage: 5.75 MG, UNK
     Route: 048
  4. ENSURE PLUS [Concomitant]
     Indication: UNDERWEIGHT
     Dosage: UNK UNK, QD
     Route: 048
  5. POSACONAZOLE [Concomitant]
     Indication: HYPERSENSITIVITY

REACTIONS (7)
  - Hypersensitivity [Recovered/Resolved]
  - Rash generalised [Recovered/Resolved]
  - Rash pruritic [Recovered/Resolved]
  - Secretion discharge [Recovered/Resolved]
  - Eosinophil count increased [Recovering/Resolving]
  - Blister [Recovered/Resolved]
  - Swelling face [Recovered/Resolved]
